FAERS Safety Report 9963219 (Version 1)
Quarter: 2014Q1

REPORT INFORMATION
  Report Type: Report from Study
  Country: US (occurrence: US)
  Receive Date: 20140305
  Receipt Date: 20140305
  Transmission Date: 20141002
  Serious: No
  Sender: FDA-Public Use
  Company Number: US-ABBVIE-13P-163-1114283-00

PATIENT
  Age: 57 Year
  Sex: Female

DRUGS (7)
  1. HUMIRA [Suspect]
     Indication: RHEUMATOID ARTHRITIS
     Route: 058
     Dates: start: 20130618
  2. FORTEO [Concomitant]
     Indication: OSTEOPOROSIS
  3. LEVOTHYROXINE [Concomitant]
     Indication: THYROID DISORDER
  4. PREDNISONE [Concomitant]
     Indication: RHEUMATOID ARTHRITIS
  5. MULTIVITAMIN [Concomitant]
     Indication: PRODUCT USED FOR UNKNOWN INDICATION
     Dosage: DAILY
  6. CALCIUM [Concomitant]
     Indication: PRODUCT USED FOR UNKNOWN INDICATION
     Dosage: EVERY OTHER DAY
  7. PROBIOTICS [Concomitant]
     Indication: PRODUCT USED FOR UNKNOWN INDICATION

REACTIONS (4)
  - Injection site pain [Not Recovered/Not Resolved]
  - Injection site erythema [Recovering/Resolving]
  - Injection site haemorrhage [Recovered/Resolved]
  - Injection site reaction [Not Recovered/Not Resolved]
